FAERS Safety Report 22353703 (Version 1)
Quarter: 2023Q2

REPORT INFORMATION
  Report Type: Spontaneous
  Country: JP (occurrence: JP)
  Receive Date: 20230523
  Receipt Date: 20230523
  Transmission Date: 20230721
  Serious: Yes (Life-Threatening, Hospitalization, Other)
  Sender: FDA-Public Use
  Company Number: JP-STL-000113

PATIENT
  Age: 60 Year
  Sex: Male

DRUGS (7)
  1. LEVETIRACETAM [Suspect]
     Active Substance: LEVETIRACETAM
     Indication: Encephalitis autoimmune
     Route: 065
  2. ACYCLOVIR [Suspect]
     Active Substance: ACYCLOVIR
     Indication: Encephalitis autoimmune
     Route: 065
  3. PHENYTOIN [Suspect]
     Active Substance: PHENYTOIN
     Indication: Encephalitis autoimmune
     Route: 065
  4. VANCOMYCIN [Suspect]
     Active Substance: VANCOMYCIN
     Indication: Pneumonia aspiration
     Route: 065
  5. Tazobactam,Piperacillin [Concomitant]
     Indication: Encephalitis autoimmune
     Route: 065
  6. AMPICILLIN SODIUM\SULBACTAM SODIUM [Concomitant]
     Active Substance: AMPICILLIN SODIUM\SULBACTAM SODIUM
     Indication: Encephalitis autoimmune
     Route: 065
  7. VANCOMYCIN [Suspect]
     Active Substance: VANCOMYCIN
     Indication: Urinary tract infection
     Route: 065

REACTIONS (3)
  - Multiple organ dysfunction syndrome [Recovered/Resolved]
  - Drug reaction with eosinophilia and systemic symptoms [Recovered/Resolved]
  - Product use in unapproved indication [Unknown]
